FAERS Safety Report 6399662-1 (Version None)
Quarter: 2009Q4

REPORT INFORMATION
  Report Type: 
  Country: None (occurrence: None)
  Receive Date: 20091014
  Receipt Date: 20091005
  Transmission Date: 20100525
  Serious: Yes (Other)
  Sender: FDA-Public Use
  Company Number: ES-ROCHE-660338

PATIENT
  Age: 7 Year
  Sex: Female

DRUGS (2)
  1. ISOTRETINOIN [Suspect]
     Dosage: DOSE: 0.7 MG/KG DAILY
     Route: 048
  2. BOTOX [Suspect]
     Dosage: A TOTAL DOSE OF 40 MOUSE UNITS
     Route: 023

REACTIONS (2)
  - NODULE [None]
  - RASH PAPULAR [None]
